FAERS Safety Report 15476219 (Version 1)
Quarter: 2018Q4

REPORT INFORMATION
  Report Type: Report from Study
  Country: AR (occurrence: AR)
  Receive Date: 20181009
  Receipt Date: 20181009
  Transmission Date: 20190205
  Serious: Yes (Death, Hospitalization)
  Sender: FDA-Public Use
  Company Number: PHHY2018AR117546

PATIENT
  Age: 78 Year
  Sex: Female

DRUGS (1)
  1. ENTRESTO [Suspect]
     Active Substance: SACUBITRIL\VALSARTAN
     Indication: CARDIAC FAILURE
     Dosage: 50 MG (SACUBITRIL 24 MG/ VALSARTAN 26 MG), QD
     Route: 065
     Dates: start: 20180828, end: 20180921

REACTIONS (6)
  - Prescribed underdose [Unknown]
  - Arrhythmia [Unknown]
  - Cardiac arrest [Fatal]
  - Varices oesophageal [Unknown]
  - Product prescribing error [Unknown]
  - Haemorrhage [Unknown]

NARRATIVE: CASE EVENT DATE: 20180926
